FAERS Safety Report 7956281-0 (Version None)
Quarter: 2011Q4

REPORT INFORMATION
  Report Type: 
  Country: None (occurrence: None)
  Receive Date: 20111205
  Receipt Date: 20111123
  Transmission Date: 20120403
  Serious: Yes (Hospitalization, Other)
  Sender: FDA-Public Use
  Company Number: US-JNJFOC-20061104231

PATIENT
  Sex: Female
  Weight: 47.6 kg

DRUGS (11)
  1. MERCAPTOPURINE [Concomitant]
     Indication: CROHN'S DISEASE
     Dates: start: 20040922, end: 20050501
  2. MESALAMINE [Concomitant]
     Indication: CROHN'S DISEASE
  3. REMICADE [Suspect]
     Dosage: INDUCTION
     Route: 042
     Dates: start: 20040603
  4. PENTASA [Concomitant]
     Dates: start: 20031222
  5. PREDNISONE TAB [Concomitant]
     Dates: start: 20031222
  6. MERCAPTOPURINE [Concomitant]
     Dates: start: 20040101
  7. REMICADE [Suspect]
     Indication: CROHN'S DISEASE
     Dosage: MAINTENANCE   TOTAL OF 8 INFUSIONS
     Route: 042
     Dates: start: 20040922, end: 20050303
  8. PREVACID [Concomitant]
  9. MIRALAX [Concomitant]
  10. BUDESONIDE [Concomitant]
     Indication: CROHN'S DISEASE
  11. PREDNISONE TAB [Concomitant]
     Indication: CROHN'S DISEASE
     Dates: start: 20031106

REACTIONS (1)
  - HODGKIN'S DISEASE STAGE II [None]
